FAERS Safety Report 8401299-7 (Version None)
Quarter: 2012Q2

REPORT INFORMATION
  Report Type: 
  Country: None (occurrence: None)
  Receive Date: 20120601
  Receipt Date: 20120522
  Transmission Date: 20120825
  Serious: Yes (Hospitalization)
  Sender: FDA-Public Use
  Company Number: US-VERTEX PHARMACEUTICALS INC.-AE-2012-005404

PATIENT
  Sex: Male
  Weight: 95.34 kg

DRUGS (10)
  1. PEGASYS [Concomitant]
     Indication: HEPATITIS C
     Route: 058
     Dates: start: 20120307, end: 20120418
  2. METOPROLOL TARTRATE [Concomitant]
  3. INCIVEK [Suspect]
     Indication: HEPATITIS C
     Route: 048
     Dates: start: 20120307, end: 20120418
  4. PAXIL [Concomitant]
     Indication: DEPRESSION
     Route: 048
  5. AMLODIPINE [Concomitant]
  6. GLYBURIDE [Concomitant]
  7. COUMADIN [Concomitant]
  8. RIBAVIRIN [Concomitant]
     Indication: HEPATITIS C
     Route: 048
     Dates: start: 20120307, end: 20120418
  9. XANAX [Concomitant]
  10. LISINOPRIL [Concomitant]

REACTIONS (2)
  - DRUG DOSE OMISSION [None]
  - COLITIS [None]
